FAERS Safety Report 12799315 (Version 2)
Quarter: 2017Q2

REPORT INFORMATION
  Report Type: Report from Study
  Country: BR (occurrence: BR)
  Receive Date: 20160930
  Receipt Date: 20170606
  Transmission Date: 20170830
  Serious: Yes (Other)
  Sender: FDA-Public Use
  Company Number: PHHY2016BR104331

PATIENT
  Sex: Female
  Weight: 92 kg

DRUGS (1)
  1. EXJADE [Suspect]
     Active Substance: DEFERASIROX
     Indication: IRON OVERLOAD
     Dosage: 250 MG, BID (1 TABLET OF 250 MG IN THE MORNING AND 1 TABLET OF 250 MG IN THE AFTERNOON)
     Route: 048

REACTIONS (3)
  - Haemorrhage [Unknown]
  - Weight increased [Unknown]
  - Inappropriate schedule of drug administration [Unknown]
